FAERS Safety Report 16086527 (Version 1)
Quarter: 2019Q1

REPORT INFORMATION
  Report Type: Spontaneous
  Country: US (occurrence: US)
  Receive Date: 20190318
  Receipt Date: 20190318
  Transmission Date: 20190418
  Serious: No
  Sender: FDA-Public Use
  Company Number: US-009507513-1903USA001934

PATIENT
  Sex: Male

DRUGS (1)
  1. ZOCOR [Suspect]
     Active Substance: SIMVASTATIN
     Route: 048

REACTIONS (4)
  - Hepatic enzyme increased [Recovered/Resolved]
  - Back pain [Recovered/Resolved]
  - Blood triglycerides increased [Recovered/Resolved]
  - Myalgia [Recovered/Resolved]
